FAERS Safety Report 7607654-7 (Version None)
Quarter: 2011Q3

REPORT INFORMATION
  Report Type: 
  Country: None (occurrence: None)
  Receive Date: 20110713
  Receipt Date: 20110331
  Transmission Date: 20111222
  Serious: Yes (Death, Hospitalization)
  Sender: FDA-Public Use
  Company Number: PHHY2011TW01234

PATIENT
  Sex: Male
  Weight: 59.7 kg

DRUGS (4)
  1. LEVOPHED [Concomitant]
     Indication: HYPOTENSION
  2. AVELOX [Concomitant]
  3. PIPERACILLIN AND TAZOBACTAM [Concomitant]
     Indication: PNEUMONIA
  4. EXJADE [Suspect]
     Indication: IRON OVERLOAD
     Dosage: 1125 MG, DAILY
     Route: 048
     Dates: start: 20101209, end: 20110102

REACTIONS (8)
  - DEATH [None]
  - PNEUMONIA [None]
  - PANCYTOPENIA [None]
  - NEUTROPENIA [None]
  - PYREXIA [None]
  - ACUTE RESPIRATORY FAILURE [None]
  - DYSPNOEA [None]
  - SEPTIC SHOCK [None]
